FAERS Safety Report 20529631 (Version 1)
Quarter: 2022Q1

REPORT INFORMATION
  Report Type: Report from Study
  Country: RO (occurrence: RO)
  Receive Date: 20220301
  Receipt Date: 20220301
  Transmission Date: 20220423
  Serious: Yes (Hospitalization)
  Sender: FDA-Public Use
  Company Number: RO-ABBVIE-22K-135-4291431-00

PATIENT
  Age: 43 Year
  Sex: Male

DRUGS (1)
  1. HUMIRA [Suspect]
     Active Substance: ADALIMUMAB
     Indication: Ankylosing spondylitis
     Route: 058
     Dates: start: 20210215, end: 202202

REACTIONS (3)
  - Biliary tract disorder [Recovering/Resolving]
  - Cholelithiasis [Recovered/Resolved]
  - Umbilical hernia [Recovering/Resolving]

NARRATIVE: CASE EVENT DATE: 20220201
